FAERS Safety Report 8548453-1 (Version None)
Quarter: 2012Q3

REPORT INFORMATION
  Report Type: 
  Country: None (occurrence: None)
  Receive Date: 20120717
  Receipt Date: 20120628
  Transmission Date: 20120928
  Serious: Yes (Death, Life-Threatening, Hospitalization, Other)
  Sender: FDA-Public Use
  Company Number: 2012MPI00187

PATIENT
  Age: 25 Year
  Sex: Female

DRUGS (1)
  1. BRENTUXIMAB VEDOTIN (BRENTUXIMAB VEDOTIN) INJECTION [Suspect]
     Indication: HODGKIN'S DISEASE
     Dosage: 1.8 MG/KG, QCYCLE, INTRAVENOUS
     Route: 042
     Dates: start: 20110504, end: 20120228

REACTIONS (9)
  - RIB FRACTURE [None]
  - ACUTE MYELOID LEUKAEMIA [None]
  - RHINOVIRUS INFECTION [None]
  - NEOPLASM PROGRESSION [None]
  - TREATMENT RELATED SECONDARY MALIGNANCY [None]
  - HODGKIN'S DISEASE [None]
  - NEUTROPHIL TOXIC GRANULATION PRESENT [None]
  - LUNG NEOPLASM [None]
  - CONDITION AGGRAVATED [None]
